FAERS Safety Report 9037054 (Version 1)
Quarter: 2013Q1

REPORT INFORMATION
  Report Type: Spontaneous
  Country: US (occurrence: None)
  Receive Date: 20130115
  Receipt Date: 20130115
  Transmission Date: 20140127
  Serious: Yes (Death)
  Sender: FDA-Public Use
  Company Number: US-1196002

PATIENT
  Age: 72 Year
  Sex: Male

DRUGS (2)
  1. PREDNISOLONE ACETATE [Suspect]
     Indication: EYE INFLAMMATION
     Route: 047
     Dates: start: 20120829, end: 20121205
  2. GLIPIZIDE [Suspect]

REACTIONS (2)
  - Gastritis [None]
  - Gastric cancer [None]
